FAERS Safety Report 7174873-6 (Version None)
Quarter: 2010Q4

REPORT INFORMATION
  Report Type: 
  Country: None (occurrence: None)
  Receive Date: 20101219
  Receipt Date: 20101213
  Transmission Date: 20110411
  Serious: Yes (Hospitalization, Other)
  Sender: FDA-Public Use
  Company Number: US-RB-015717-10

PATIENT
  Age: 68 Year
  Sex: Female

DRUGS (6)
  1. SUBOXONE [Suspect]
     Indication: PRODUCT USED FOR UNKNOWN INDICATION
     Route: 060
     Dates: start: 20090501, end: 20090801
  2. SUBOXONE [Suspect]
     Route: 060
     Dates: start: 20091101, end: 20100601
  3. SUBOXONE [Suspect]
     Route: 060
     Dates: start: 20100701
  4. SUBOXONE [Suspect]
     Indication: DRUG DEPENDENCE
     Dosage: DOSAGE UNKNOWN AT THIS TIME.
     Route: 060
  5. PERCOCET [Suspect]
     Indication: PRODUCT USED FOR UNKNOWN INDICATION
     Dosage: DOSING INFORMATION UNKNOWN
     Route: 065
  6. SUBOXONE [Suspect]
     Indication: PRODUCT USED FOR UNKNOWN INDICATION
     Dosage: SUBLINGUAL FILM - DOSING INFORMATION UNKNOWN
     Route: 065

REACTIONS (12)
  - ARTHRALGIA [None]
  - CRYING [None]
  - DEPRESSED MOOD [None]
  - DRUG DEPENDENCE [None]
  - INFLUENZA [None]
  - INSOMNIA [None]
  - LIMB INJURY [None]
  - NAUSEA [None]
  - OROPHARYNGEAL PAIN [None]
  - PYREXIA [None]
  - SUBSTANCE ABUSE [None]
  - THROMBOSIS [None]
